FAERS Safety Report 16876484 (Version 3)
Quarter: 2020Q1

REPORT INFORMATION
  Report Type: Spontaneous
  Country: US (occurrence: US)
  Receive Date: 20191002
  Receipt Date: 20200128
  Transmission Date: 20200409
  Serious: Yes (Death, Life-Threatening, Hospitalization, Other)
  Sender: FDA-Public Use
  Company Number: US-BRISTOL-MYERS SQUIBB COMPANY-BMS-2019-094327

PATIENT
  Age: 94 Year
  Sex: Male
  Weight: 47.63 kg

DRUGS (2)
  1. ELIQUIS [Suspect]
     Active Substance: APIXABAN
     Indication: CARDIAC PACEMAKER INSERTION
     Dosage: UNK
     Route: 065
     Dates: start: 20190802
  2. ELIQUIS [Suspect]
     Active Substance: APIXABAN
     Indication: HYPOTENSION
     Route: 065

REACTIONS (2)
  - Haemorrhage [Fatal]
  - Intentional product use issue [Unknown]

NARRATIVE: CASE EVENT DATE: 20190823
